FAERS Safety Report 9740225 (Version 1)
Quarter: 2013Q4

REPORT INFORMATION
  Report Type: Spontaneous
  Country: US (occurrence: US)
  Receive Date: 20131209
  Receipt Date: 20131209
  Transmission Date: 20140711
  Serious: No
  Sender: FDA-Public Use
  Company Number: US-BIOGENIDEC-2013BI087925

PATIENT
  Age: 53 Year
  Sex: Female
  Weight: 99 kg

DRUGS (4)
  1. TECFIDERA [Suspect]
     Indication: MULTIPLE SCLEROSIS
     Route: 048
     Dates: start: 20130827
  2. TECFIDERA [Suspect]
     Indication: MULTIPLE SCLEROSIS
     Route: 048
  3. CARVEDILOL [Concomitant]
  4. HYDROCHLORAT [Concomitant]

REACTIONS (5)
  - Pruritus generalised [Unknown]
  - Urticaria [Unknown]
  - Headache [Unknown]
  - Hot flush [Unknown]
  - Pruritus [Unknown]
